FAERS Safety Report 5389917-1 (Version None)
Quarter: 2007Q3

REPORT INFORMATION
  Report Type: 
  Country: None (occurrence: None)
  Receive Date: 20070718
  Receipt Date: 20070709
  Transmission Date: 20080115
  Serious: Yes (Hospitalization)
  Sender: FDA-Public Use
  Company Number: US-JNJFOC-20060500785

PATIENT
  Sex: Female
  Weight: 70.76 kg

DRUGS (12)
  1. DURAGESIC-100 [Suspect]
     Indication: PAIN
     Dosage: TWO 75 UG/HR PATCHES
     Route: 062
  2. CARBAMAZEPINE [Concomitant]
     Indication: PAIN
     Route: 048
  3. CARBAMAZEPINE [Concomitant]
     Indication: DEPRESSION
     Route: 048
  4. PROTONIX [Concomitant]
     Indication: HIATUS HERNIA
     Route: 048
  5. SKELAXIN [Concomitant]
     Indication: INFLAMMATION
     Route: 048
  6. CELEBREX [Concomitant]
     Indication: ARTHRITIS
     Route: 048
  7. SEROQUEL [Concomitant]
     Indication: PAIN
     Route: 048
  8. SEROQUEL [Concomitant]
     Indication: DEPRESSION
     Route: 048
  9. NORTRIPTYLINE HCL [Concomitant]
     Indication: PAIN
     Route: 048
  10. NORTRIPTYLINE HCL [Concomitant]
     Indication: DEPRESSION
     Dosage: 50 MG, 2 AT BEDIME, ORAL
     Route: 048
  11. ZOLOFT [Concomitant]
     Indication: DEPRESSION
     Route: 048
  12. DILAUDID [Concomitant]
     Indication: BREAKTHROUGH PAIN
     Dosage: 4 MG, ONE TABLET 4-6 HOURS AS NEEDED
     Route: 048

REACTIONS (8)
  - CLOSTRIDIAL INFECTION [None]
  - HYPERTENSION [None]
  - INCORRECT DRUG ADMINISTRATION DURATION [None]
  - MALAISE [None]
  - MUSCLE SPASMS [None]
  - NEPHROLITHIASIS [None]
  - THERAPEUTIC RESPONSE DECREASED [None]
  - URINARY TRACT INFECTION [None]
